FAERS Safety Report 23034228 (Version 1)
Quarter: 2023Q4

REPORT INFORMATION
  Report Type: Spontaneous
  Country: US (occurrence: None)
  Receive Date: 20231005
  Receipt Date: 20231005
  Transmission Date: 20240110
  Serious: Yes (Hospitalization)
  Sender: FDA-Public Use
  Company Number: None

PATIENT
  Age: 61 Year
  Sex: Female

DRUGS (1)
  1. ICATIBANT [Suspect]
     Active Substance: ICATIBANT ACETATE
     Indication: Immunodeficiency
     Dosage: FREQUENCY : AS NEEDED;?
     Route: 058

REACTIONS (3)
  - Nephrolithiasis [None]
  - Hereditary angioedema [None]
  - Procedural pain [None]
